FAERS Safety Report 9366076 (Version 1)
Quarter: 2013Q2

REPORT INFORMATION
  Report Type: Spontaneous
  Country: FR (occurrence: None)
  Receive Date: 20130619
  Receipt Date: 20130619
  Transmission Date: 20140414
  Serious: Yes (Hospitalization)
  Sender: FDA-Public Use
  Company Number: BACL20130008

PATIENT
  Age: 58 Year
  Sex: Male

DRUGS (2)
  1. BACLOFEN [Suspect]
     Dosage: 10 MG PER DAY DOSAGE INCREASED TO 200 MG PER DAY.
     Route: 048
     Dates: start: 201207, end: 201210
  2. BOTULINIUM (BOTULINUM TOXIN TYPE A)(INJECTION)(BOTULINUM TOXIN TYPE A) [Concomitant]

REACTIONS (10)
  - Confusional state [None]
  - Memory impairment [None]
  - Dysstasia [None]
  - Abasia [None]
  - Areflexia [None]
  - Urinary incontinence [None]
  - Axonal neuropathy [None]
  - Dystonia [None]
  - Paralysis flaccid [None]
  - Overdose [None]
